FAERS Safety Report 12760855 (Version 1)
Quarter: 2016Q3

REPORT INFORMATION
  Report Type: Report from Study
  Country: CA (occurrence: CA)
  Receive Date: 20160919
  Receipt Date: 20160919
  Transmission Date: 20161109
  Serious: Yes (Death, Hospitalization, Other)
  Sender: FDA-Public Use
  Company Number: CA-TAKEDA-2016TUS013552

PATIENT
  Age: 88 Year
  Sex: Female

DRUGS (3)
  1. VITAMIN B12 [Concomitant]
     Active Substance: CYANOCOBALAMIN
     Dosage: UNK
  2. PLAVIX [Concomitant]
     Active Substance: CLOPIDOGREL BISULFATE
     Dosage: UNK
     Dates: start: 1999
  3. VEDOLIZUMAB [Suspect]
     Active Substance: VEDOLIZUMAB
     Indication: CROHN^S DISEASE
     Dosage: 300 MG, UNK
     Route: 042
     Dates: start: 20160622, end: 20160805

REACTIONS (7)
  - Post procedural infection [Fatal]
  - Weight decreased [Unknown]
  - Large intestine perforation [Unknown]
  - Crohn^s disease [Not Recovered/Not Resolved]
  - Gait disturbance [Unknown]
  - Fall [Unknown]
  - Viral infection [Unknown]

NARRATIVE: CASE EVENT DATE: 201607
